FAERS Safety Report 10230895 (Version 2)
Quarter: 2014Q2

REPORT INFORMATION
  Report Type: Report from Study
  Country: US (occurrence: US)
  Receive Date: 20140611
  Receipt Date: 20140611
  Transmission Date: 20141212
  Serious: Yes (Hospitalization)
  Sender: FDA-Public Use
  Company Number: US-VERTEX PHARMACEUTICALS INC-2014-002144

PATIENT
  Age: 38 Year
  Sex: Female
  Weight: 53 kg

DRUGS (40)
  1. VX-809 FDC [Suspect]
     Indication: CYSTIC FIBROSIS
     Dosage: UNK
     Route: 065
     Dates: start: 20140317, end: 20140509
  2. VX-770 FDC [Suspect]
     Indication: CYSTIC FIBROSIS
     Dosage: UNK
     Route: 065
     Dates: start: 20140317, end: 20140509
  3. VX-809 FDC OR PLACEBO [Suspect]
     Indication: CYSTIC FIBROSIS
     Dosage: UNK
     Route: 065
     Dates: start: 20130930, end: 20140317
  4. VX-770 FDC OR PLACEBO [Suspect]
     Indication: CYSTIC FIBROSIS
     Dosage: UNK
     Route: 065
     Dates: start: 20130930, end: 20140317
  5. ALLEGRA [Concomitant]
     Indication: CHRONIC SINUSITIS
     Dosage: 1 TAB, QD
     Dates: start: 20140417
  6. MIRALAX [Concomitant]
     Indication: CONSTIPATION
     Dosage: 17 G, BID
     Dates: start: 20140410
  7. OMEPRAZOLE [Concomitant]
     Indication: GASTROOESOPHAGEAL REFLUX DISEASE
     Dosage: 40 MG, BID
     Dates: start: 2010
  8. MUCINEX [Concomitant]
     Indication: CHRONIC SINUSITIS
     Dosage: 600 MG, BID
     Dates: start: 2009
  9. FLONASE [Concomitant]
     Indication: CHRONIC SINUSITIS
     Dosage: 2 SPRAYS/NOSTRIL, BID
     Route: 045
     Dates: start: 2004
  10. VITAMAX [Concomitant]
     Indication: PANCREATIC INSUFFICIENCY
     Dosage: 1 TAB, BID
     Dates: start: 2002
  11. HYPERTONIC SALINE SOLUTION [Concomitant]
     Indication: CYSTIC FIBROSIS LUNG
     Dosage: 7 %, BID
     Dates: start: 20080309
  12. AZITHROMYCIN [Concomitant]
     Indication: CYSTIC FIBROSIS LUNG
     Dosage: 500 MG, TIW
     Route: 048
     Dates: start: 2007
  13. ADVAIR [Concomitant]
     Indication: CYSTIC FIBROSIS LUNG
     Dosage: 2 PUFFS, BID
     Route: 065
     Dates: start: 2010
  14. DUONEB [Concomitant]
     Indication: CYSTIC FIBROSIS LUNG
     Dosage: 2.5 MG, TID
     Route: 065
     Dates: start: 2010
  15. ZENPEP [Concomitant]
     Indication: PANCREATIC INSUFFICIENCY
     Dosage: 5/MEAL, 2.5/SNACK, QD
     Route: 048
     Dates: start: 20121129
  16. ZENPEP [Concomitant]
     Dosage: 3 CAPS, TID
     Route: 048
  17. CALCIUM [Concomitant]
     Indication: OSTEOPOROSIS
     Dosage: 600 MG, BID
     Dates: start: 200701
  18. SINGULAIR [Concomitant]
     Indication: CHRONIC SINUSITIS
     Dosage: 10 MG, QD
     Dates: start: 20131122
  19. IBUPROFEN [Concomitant]
     Indication: MUSCULOSKELETAL CHEST PAIN
     Dosage: 400 MG, PRN
     Route: 065
     Dates: start: 20131210
  20. IBUPROFEN [Concomitant]
     Indication: BACK PAIN
  21. BUDESONIDE [Concomitant]
     Indication: CHRONIC SINUSITIS
     Dosage: 5 ML, BID
     Dates: start: 20140117
  22. ACETAMINOPHEN [Concomitant]
     Dosage: 650 MG, PRN Q4H
     Route: 048
     Dates: start: 20140430
  23. ALBUTEROL W/IPRATROPIUM [Concomitant]
     Dosage: 3 ML, Q6H
     Route: 055
  24. AQUADEKS [Concomitant]
     Dosage: 1 TAB, BID
     Route: 048
  25. CETIRIZINE [Concomitant]
     Dosage: 10 MG, QD
     Route: 048
  26. DEXTROSE [Concomitant]
     Indication: HYPOGLYCAEMIA
     Dosage: 125 ML, PRN
     Route: 042
  27. DEXTROSE [Concomitant]
     Dosage: 250 ML, PRN
     Route: 042
  28. DIPHENHYDRAMINE HCL [Concomitant]
     Indication: PRURITUS
     Dosage: 50 MG, PRN Q6H
     Route: 042
  29. FLUTICASONE [Concomitant]
     Dosage: 100 ?G, BID
     Route: 045
  30. FLUTICASONE [Concomitant]
     Dosage: 100 ?G, BID
     Route: 055
  31. GLUCOSE [Concomitant]
     Dosage: 16 G, PRN
     Route: 048
  32. GUAIFENESIN [Concomitant]
     Dosage: 1200 MG, Q12H
     Route: 048
  33. LACTOBACILLUS [Concomitant]
     Dosage: 1 TAB, TID W/MEALS
     Route: 048
  34. METOCLOPRAMIDE [Concomitant]
     Indication: NAUSEA
     Dosage: 10 MG, PRN Q6H
     Route: 042
  35. METOCLOPRAMIDE [Concomitant]
     Indication: VOMITING
  36. MONTELUKAST [Concomitant]
     Dosage: 10 MG, QD PM
     Route: 048
  37. ONDANSETRON [Concomitant]
     Dosage: 4 MG, PRN Q4H
     Route: 042
  38. POLYETHYLENE GLYCOL [Concomitant]
     Dosage: 17 G, BID
     Route: 048
  39. RANITIDINE [Concomitant]
     Dosage: 150 MG, BID
     Route: 048
  40. SODIUM CHLORIDE [Concomitant]
     Dosage: 4 ML, Q12H
     Route: 055

REACTIONS (1)
  - Infective pulmonary exacerbation of cystic fibrosis [Recovered/Resolved]
